FAERS Safety Report 5923087-3 (Version None)
Quarter: 2008Q4

REPORT INFORMATION
  Report Type: 
  Country: None (occurrence: None)
  Receive Date: 20081018
  Receipt Date: 20081006
  Transmission Date: 20090506
  Serious: Yes (Hospitalization)
  Sender: FDA-Public Use
  Company Number: CO-PFIZER INC-2008085054

PATIENT
  Sex: Female

DRUGS (3)
  1. CHAMPIX [Suspect]
     Indication: SMOKING CESSATION THERAPY
     Route: 048
     Dates: start: 20080623, end: 20080811
  2. ALL OTHER THERAPEUTIC PRODUCTS [Concomitant]
  3. CARDIOASPIRINA [Concomitant]

REACTIONS (1)
  - GASTRIC ULCER HAEMORRHAGE [None]
